FAERS Safety Report 8619216-3 (Version None)
Quarter: 2012Q3

REPORT INFORMATION
  Report Type: 
  Country: None (occurrence: None)
  Receive Date: 20120810
  Receipt Date: 20120801
  Transmission Date: 20120928
  Serious: Yes (Hospitalization)
  Sender: FDA-Public Use
  Company Number: DKLU1083595

PATIENT
  Age: 6 Year
  Sex: Male

DRUGS (1)
  1. SABRIL [Suspect]
     Indication: PRODUCT USED FOR UNKNOWN INDICATION
     Dosage: 2 IN 1 D
     Dates: start: 20120701

REACTIONS (2)
  - UNEVALUABLE EVENT [None]
  - GASTROOESOPHAGEAL REFLUX DISEASE [None]
